FAERS Safety Report 6463630-1 (Version None)
Quarter: 2009Q4

REPORT INFORMATION
  Report Type: 
  Country: None (occurrence: None)
  Receive Date: 20091201
  Receipt Date: 20091119
  Transmission Date: 20100525
  Serious: Yes (Hospitalization)
  Sender: FDA-Public Use
  Company Number: PHHY2009JP45048

PATIENT
  Sex: Female
  Weight: 49 kg

DRUGS (6)
  1. DIOVAN T30230+TAB+HY [Suspect]
     Indication: HYPERTENSION
     Dosage: 80 MG, QD
     Route: 048
     Dates: start: 20080919, end: 20081031
  2. DIOVAN T30230+TAB+HY [Suspect]
     Dosage: 160 MG, QD
     Route: 048
     Dates: start: 20081101, end: 20090721
  3. NORVASC [Concomitant]
     Dosage: 5 MG, UNK
     Route: 048
     Dates: start: 20090115, end: 20090721
  4. CARDENALIN [Concomitant]
     Dosage: 2 MG, UNK
     Route: 048
     Dates: start: 20090528, end: 20090721
  5. LIPITOR [Concomitant]
     Dosage: 10 MG, UNK
     Route: 048
     Dates: start: 20061027, end: 20090721
  6. SHAKUYAKUKANZOUTOU [Concomitant]
     Dosage: 5 G, UNK
     Route: 048
     Dates: start: 20070619, end: 20090721

REACTIONS (2)
  - BLOOD PRESSURE DECREASED [None]
  - CARDIAC FAILURE [None]
